FAERS Safety Report 6057580-2 (Version None)
Quarter: 2009Q1

REPORT INFORMATION
  Report Type: 
  Country: None (occurrence: None)
  Receive Date: 20090127
  Receipt Date: 20090127
  Transmission Date: 20090719
  Serious: Yes (Hospitalization)
  Sender: FDA-Public Use
  Company Number: None

PATIENT
  Sex: Male
  Weight: 97.8 kg

DRUGS (1)
  1. CIPROFLOXACIN [Suspect]
     Dosage: 500MG EVERY 12 HOURS PO
     Route: 048
     Dates: start: 20081003, end: 20081013

REACTIONS (4)
  - HAEMODIALYSIS [None]
  - RENAL FAILURE ACUTE [None]
  - TUBULOINTERSTITIAL NEPHRITIS [None]
  - URTICARIA [None]
